FAERS Safety Report 5016828-3 (Version None)
Quarter: 2006Q2

REPORT INFORMATION
  Report Type: 
  Country: None (occurrence: None)
  Receive Date: 20060602
  Receipt Date: 20060525
  Transmission Date: 20061013
  Serious: Yes (Disabling)
  Sender: FDA-Public Use
  Company Number: 2006UW10368

PATIENT
  Sex: Male

DRUGS (3)
  1. SEROQUEL [Suspect]
     Route: 048
  2. FLUANXOL [Concomitant]
  3. OLANZAPINE [Concomitant]

REACTIONS (2)
  - PAIN IN EXTREMITY [None]
  - VEIN PAIN [None]
